FAERS Safety Report 5374206-1 (Version None)
Quarter: 2007Q2

REPORT INFORMATION
  Report Type: 
  Country: None (occurrence: None)
  Receive Date: 20070627
  Receipt Date: 20061024
  Transmission Date: 20071010
  Serious: Yes (Other)
  Sender: FDA-Public Use
  Company Number: 468805

PATIENT
  Age: 79 Year
  Sex: Male
  Weight: 74.8 kg

DRUGS (1)
  1. XELODA [Suspect]
     Indication: COLORECTAL CANCER METASTATIC
     Dosage: 1500 MG 1 PER DAY ORAL
     Route: 048
     Dates: start: 20061009, end: 20061031

REACTIONS (1)
  - NAUSEA [None]
